FAERS Safety Report 23076659 (Version 2)
Quarter: 2023Q4

REPORT INFORMATION
  Report Type: Spontaneous
  Country: JP (occurrence: JP)
  Receive Date: 20231017
  Receipt Date: 20231128
  Transmission Date: 20240110
  Serious: Yes (Other)
  Sender: FDA-Public Use
  Company Number: JP-BEH-2023164345

PATIENT
  Age: 6 Year
  Sex: Female

DRUGS (2)
  1. HUMAN IMMUNOGLOBULIN G [Suspect]
     Active Substance: HUMAN IMMUNOGLOBULIN G
     Indication: Kawasaki^s disease
     Dosage: DAY 7
     Route: 042
  2. HUMAN IMMUNOGLOBULIN G [Suspect]
     Active Substance: HUMAN IMMUNOGLOBULIN G
     Dosage: DAY 9
     Route: 042

REACTIONS (4)
  - Haemolytic anaemia [Recovered/Resolved]
  - Red blood cell spherocytes present [Recovered/Resolved]
  - No adverse event [Unknown]
  - Off label use [Unknown]
